FAERS Safety Report 5536500-0 (Version None)
Quarter: 2007Q4

REPORT INFORMATION
  Report Type: 
  Country: None (occurrence: None)
  Receive Date: 20071206
  Receipt Date: 20071016
  Transmission Date: 20080405
  Serious: Yes (Other)
  Sender: FDA-Public Use
  Company Number: US-AMGEN-QUU242985

PATIENT
  Sex: Female
  Weight: 68.1 kg

DRUGS (8)
  1. ENBREL [Suspect]
     Indication: PSORIASIS
     Route: 058
     Dates: start: 20040503, end: 20060501
  2. ZANTAC [Concomitant]
     Route: 048
  3. LIDEX [Concomitant]
  4. DERMA-SMOOTHE [Concomitant]
  5. CLOBETASOL PROPIONATE [Concomitant]
     Route: 061
  6. TRIAMCINOLONE [Concomitant]
     Route: 061
  7. FLUOCINOLONE ACETONIDE [Concomitant]
  8. ULTRAVATE [Concomitant]

REACTIONS (5)
  - ABDOMINAL PAIN LOWER [None]
  - CONVULSION [None]
  - DIARRHOEA [None]
  - HEADACHE [None]
  - NIGHT SWEATS [None]
